FAERS Safety Report 12213194 (Version 1)
Quarter: 2016Q1

REPORT INFORMATION
  Report Type: Spontaneous
  Country: US (occurrence: None)
  Receive Date: 20160325
  Receipt Date: 20160325
  Transmission Date: 20160526
  Serious: No
  Sender: FDA-Public Use
  Company Number: None

PATIENT
  Age: 30 Year
  Sex: Female

DRUGS (1)
  1. SOVALDI [Suspect]
     Active Substance: SOFOSBUVIR
     Indication: HEPATITIS C
     Dosage: ORAL 047 ORAL DAILY
     Route: 048

REACTIONS (3)
  - Fatigue [None]
  - Headache [None]
  - Drug dose omission [None]

NARRATIVE: CASE EVENT DATE: 20160324
